FAERS Safety Report 8268567-3 (Version None)
Quarter: 2012Q2

REPORT INFORMATION
  Report Type: 
  Country: None (occurrence: None)
  Receive Date: 20120409
  Receipt Date: 20120405
  Transmission Date: 20120825
  Serious: No
  Sender: FDA-Public Use
  Company Number: US-TEVA-332177USA

PATIENT
  Age: 30 Year
  Sex: Female
  Weight: 66.284 kg

DRUGS (1)
  1. PLAN B ONE-STEP [Suspect]
     Indication: POST COITAL CONTRACEPTION
     Dosage: 1.5 MILLIGRAM;
     Route: 048
     Dates: start: 20120312, end: 20120312

REACTIONS (4)
  - NAUSEA [None]
  - ABDOMINAL PAIN LOWER [None]
  - MENSTRUATION DELAYED [None]
  - FATIGUE [None]
